FAERS Safety Report 8478190-3 (Version None)
Quarter: 2012Q2

REPORT INFORMATION
  Report Type: 
  Country: None (occurrence: None)
  Receive Date: 20120629
  Receipt Date: 20120619
  Transmission Date: 20120825
  Serious: Yes (Hospitalization, Other)
  Sender: FDA-Public Use
  Company Number: US-ELI_LILLY_AND_COMPANY-US201206007011

PATIENT
  Sex: Female

DRUGS (1)
  1. FORTEO [Suspect]
     Indication: OSTEOPOROSIS
     Dosage: 20 U, QD

REACTIONS (12)
  - ATRIAL FIBRILLATION [None]
  - FALL [None]
  - KNEE ARTHROPLASTY [None]
  - HIP FRACTURE [None]
  - FATIGUE [None]
  - ASTHMA [None]
  - ADRENAL INSUFFICIENCY [None]
  - PNEUMONIA [None]
  - AORTIC VALVE DISEASE [None]
  - GASTROINTESTINAL DISORDER [None]
  - THYROID DISORDER [None]
  - MUSCULAR WEAKNESS [None]
